FAERS Safety Report 21886510 (Version 2)
Quarter: 2023Q1

REPORT INFORMATION
  Report Type: Spontaneous
  Country: US (occurrence: US)
  Receive Date: 20230119
  Receipt Date: 20230310
  Transmission Date: 20230417
  Serious: No
  Sender: FDA-Public Use
  Company Number: US-BRISTOL-MYERS SQUIBB COMPANY-2023-008745

PATIENT
  Age: 64 Year
  Sex: Female

DRUGS (1)
  1. POMALYST [Suspect]
     Active Substance: POMALIDOMIDE
     Indication: Plasma cell myeloma
     Dosage: TAKE 1 CAPSULE BY MOUTH DAILY ON DAYS 1-21 OF EACH 28-DAY CYCLE. MAY TAKE W/ OR W/O FOOD
     Route: 048
     Dates: start: 20220927

REACTIONS (5)
  - Salivary hypersecretion [Not Recovered/Not Resolved]
  - Drooling [Not Recovered/Not Resolved]
  - Product distribution issue [Unknown]
  - Tremor [Not Recovered/Not Resolved]
  - Hypoaesthesia [Not Recovered/Not Resolved]
